APPROVED DRUG PRODUCT: ACYCLOVIR
Active Ingredient: ACYCLOVIR
Strength: 200MG/5ML
Dosage Form/Route: SUSPENSION;ORAL
Application: A212252 | Product #001 | TE Code: AB
Applicant: NOVITIUM PHARMA LLC
Approved: Jul 10, 2020 | RLD: No | RS: Yes | Type: RX